FAERS Safety Report 5947423-7 (Version None)
Quarter: 2008Q4

REPORT INFORMATION
  Report Type: 
  Country: None (occurrence: None)
  Receive Date: 20081110
  Receipt Date: 20081029
  Transmission Date: 20090506
  Serious: Yes (Other)
  Sender: FDA-Public Use
  Company Number: JP-PFIZER INC-2008092515

PATIENT

DRUGS (1)
  1. GENOTROPIN [Suspect]
     Indication: NOONAN SYNDROME

REACTIONS (1)
  - VENTRICULAR HYPERTROPHY [None]
